FAERS Safety Report 10187185 (Version 1)
Quarter: 2014Q2

REPORT INFORMATION
  Report Type: Spontaneous
  Country: FR (occurrence: None)
  Receive Date: 20140520
  Receipt Date: 20140520
  Transmission Date: 20141212
  Serious: Yes (Hospitalization)
  Sender: FDA-Public Use
  Company Number: 2014000143

PATIENT
  Age: 61 Year
  Sex: Female

DRUGS (1)
  1. ACEON (PERINDOPRIL ERBUMINE) TABLET [Suspect]
     Indication: HYPERTENSION
     Route: 048
     Dates: start: 20131110, end: 20140329

REACTIONS (2)
  - Pancreatic pseudocyst [None]
  - Pancreatitis [None]
